FAERS Safety Report 19975445 (Version 4)
Quarter: 2021Q4

REPORT INFORMATION
  Report Type: Report from Study
  Country: US (occurrence: US)
  Receive Date: 20211021
  Receipt Date: 20211126
  Transmission Date: 20220303
  Serious: Yes (Hospitalization, Other)
  Sender: FDA-Public Use
  Company Number: US-ABBVIE-21K-163-3981031-00

PATIENT
  Sex: Female

DRUGS (12)
  1. HUMIRA [Suspect]
     Active Substance: ADALIMUMAB
     Indication: Psoriatic arthropathy
     Dosage: CITRATE FREE
     Route: 058
     Dates: start: 2014, end: 202106
  2. AD26.COV2.S [Suspect]
     Active Substance: AD26.COV2.S
     Indication: COVID-19 immunisation
     Dosage: JOHNSON + JOHNSON
     Route: 030
     Dates: start: 202104, end: 202104
  3. ASPIRIN [Concomitant]
     Active Substance: ASPIRIN
     Indication: Cardiac disorder
  4. LIPITOR [Concomitant]
     Active Substance: ATORVASTATIN CALCIUM
     Indication: Blood cholesterol increased
  5. CALCIUM CARBONATE;MAGNESIUM OXIDE;ZINC [Concomitant]
     Indication: Product used for unknown indication
  6. BENADRYL [Concomitant]
     Active Substance: DIPHENHYDRAMINE HYDROCHLORIDE
     Indication: Hypersensitivity
  7. LASIX [Concomitant]
     Active Substance: FUROSEMIDE
     Indication: Fluid retention
  8. METOPROLOL TARTRATE [Concomitant]
     Active Substance: METOPROLOL TARTRATE
     Indication: Hypertension
  9. POTASSIUM [Concomitant]
     Active Substance: POTASSIUM
     Indication: Osteoporosis
  10. VITAMIN D3 [Concomitant]
     Active Substance: CHOLECALCIFEROL
     Indication: Supplementation therapy
  11. NITROGLYCERIN [Concomitant]
     Active Substance: NITROGLYCERIN
     Indication: Chest pain
  12. PANTOPRAZOLE [Concomitant]
     Active Substance: PANTOPRAZOLE
     Indication: Dyspepsia

REACTIONS (20)
  - Lung cancer metastatic [Recovered/Resolved]
  - Lung disorder [Recovered/Resolved]
  - Precancerous cells present [Recovered/Resolved]
  - Pneumothorax [Recovered/Resolved]
  - Brain neoplasm benign [Recovered/Resolved]
  - Intestinal polyp [Recovered/Resolved]
  - Pulmonary oedema [Recovering/Resolving]
  - Lung neoplasm malignant [Recovered/Resolved]
  - Cholecystitis infective [Recovered/Resolved]
  - Cholelithiasis [Recovered/Resolved]
  - Pancreatitis [Recovering/Resolving]
  - Volvulus [Recovering/Resolving]
  - Gastrointestinal disorder [Recovering/Resolving]
  - Diabetes mellitus [Not Recovered/Not Resolved]
  - Cough [Unknown]
  - Abdominal pain [Recovered/Resolved]
  - Vaccination site pain [Recovered/Resolved]
  - Urinary tract infection [Recovering/Resolving]
  - Dyspnoea [Recovering/Resolving]
  - Chest pain [Recovering/Resolving]

NARRATIVE: CASE EVENT DATE: 20160101
